FAERS Safety Report 21772670 (Version 1)
Quarter: 2022Q4

REPORT INFORMATION
  Report Type: Report from Study
  Country: FR (occurrence: None)
  Receive Date: 20221223
  Receipt Date: 20221223
  Transmission Date: 20230113
  Serious: Yes (Hospitalization)
  Sender: FDA-Public Use
  Company Number: 2022A410504

PATIENT
  Age: 758 Month
  Sex: Male
  Weight: 88.5 kg

DRUGS (3)
  1. EVUSHELD [Suspect]
     Active Substance: CILGAVIMAB\TIXAGEVIMAB
     Indication: COVID-19 prophylaxis
     Dosage: 300 MG (TIXAGEVIMAB 150 MG/ CILGAVIMAB 150 MG) ? 1ST DOSE, ONCE/SINGLE ADMINISTRATION
     Route: 030
     Dates: start: 20220624
  2. RITUXIMAB [Concomitant]
     Active Substance: RITUXIMAB
     Indication: Immunosuppressant drug therapy
     Route: 065
  3. IMBRUVICA [Concomitant]
     Active Substance: IBRUTINIB
     Indication: Immunosuppressant drug therapy
     Route: 065

REACTIONS (1)
  - COVID-19 [Unknown]

NARRATIVE: CASE EVENT DATE: 20221114
